FAERS Safety Report 17032969 (Version 1)
Quarter: 2019Q4

REPORT INFORMATION
  Report Type: Spontaneous
  Country: ES (occurrence: ES)
  Receive Date: 20191114
  Receipt Date: 20191114
  Transmission Date: 20200122
  Serious: Yes (Other)
  Sender: FDA-Public Use
  Company Number: ES-ALLERGAN-1946153US

PATIENT
  Sex: Male
  Weight: 81 kg

DRUGS (1)
  1. CONSTELLA [Suspect]
     Active Substance: LINACLOTIDE
     Indication: CONSTIPATION
     Route: 048
     Dates: start: 20190601, end: 20190709

REACTIONS (1)
  - Phantom limb syndrome [Recovered/Resolved]

NARRATIVE: CASE EVENT DATE: 20190705
